FAERS Safety Report 19126035 (Version 1)
Quarter: 2021Q2

REPORT INFORMATION
  Report Type: Spontaneous
  Country: US (occurrence: US)
  Receive Date: 20210412
  Receipt Date: 20210412
  Transmission Date: 20210717
  Serious: Yes (Other)
  Sender: FDA-Public Use
  Company Number: None

PATIENT
  Age: 66 Year
  Sex: Female
  Weight: 69.75 kg

DRUGS (1)
  1. CIPROFLOXACIN. [Suspect]
     Active Substance: CIPROFLOXACIN
     Indication: PROPHYLAXIS
     Dosage: ?          OTHER FREQUENCY:ALMOST ALL DAY;?
     Route: 042
     Dates: start: 20210122, end: 20210326

REACTIONS (6)
  - Leukaemia [None]
  - Delirium [None]
  - Hallucination [None]
  - Gait inability [None]
  - Nephropathy [None]
  - Paraesthesia [None]

NARRATIVE: CASE EVENT DATE: 20210201
